FAERS Safety Report 12190670 (Version 1)
Quarter: 2016Q1

REPORT INFORMATION
  Report Type: Spontaneous
  Country: US (occurrence: US)
  Receive Date: 20160318
  Receipt Date: 20160318
  Transmission Date: 20160526
  Serious: No
  Sender: FDA-Public Use
  Company Number: US-GLAXOSMITHKLINE-US2016038220

PATIENT
  Age: 23 Year
  Sex: Female

DRUGS (1)
  1. ALLI [Suspect]
     Active Substance: ORLISTAT
     Indication: WEIGHT DECREASED
     Dosage: UNK
     Route: 048
     Dates: start: 20160307, end: 20160314

REACTIONS (3)
  - Malaise [Not Recovered/Not Resolved]
  - Chromaturia [Not Recovered/Not Resolved]
  - Faeces discoloured [Not Recovered/Not Resolved]

NARRATIVE: CASE EVENT DATE: 20160309
